FAERS Safety Report 9315566 (Version 1)
Quarter: 2013Q2

REPORT INFORMATION
  Report Type: Report from Study
  Country: MX (occurrence: MX)
  Receive Date: 20130529
  Receipt Date: 20130529
  Transmission Date: 20140414
  Serious: Yes (Hospitalization)
  Sender: FDA-Public Use
  Company Number: MX-BRISTOL-MYERS SQUIBB COMPANY-15383839

PATIENT
  Age: 76 Year
  Sex: Female

DRUGS (4)
  1. APIXABAN [Suspect]
     Indication: THROMBOSIS PROPHYLAXIS
     Dosage: THERAPY INTERRUPTED ON 16OCT2010.
     Route: 048
     Dates: start: 20100810, end: 20101016
  2. ASPIRINA [Concomitant]
     Dates: start: 20100810, end: 20100916
  3. DIGOXINA [Concomitant]
     Dates: start: 20060622
  4. FUROSEMIDE [Concomitant]
     Dates: start: 20100907

REACTIONS (1)
  - Pericardial effusion [Recovered/Resolved]
